FAERS Safety Report 7755432-0 (Version None)
Quarter: 2011Q3

REPORT INFORMATION
  Report Type: 
  Country: None (occurrence: None)
  Receive Date: 20110830
  Receipt Date: 20110606
  Transmission Date: 20111222
  Serious: Yes (Hospitalization)
  Sender: FDA-Public Use
  Company Number: 2011CP000108

PATIENT
  Sex: Female

DRUGS (6)
  1. PHENOBARBITAL TAB [Concomitant]
  2. KEPPRA [Concomitant]
  3. PROPOFOL [Concomitant]
  4. OFIRMEV [Suspect]
     Dosage: IV
     Route: 042
  5. CEFAZOLIN [Concomitant]
  6. ZOFRAN [Concomitant]

REACTIONS (1)
  - ANGIOEDEMA [None]
